FAERS Safety Report 6986916-0 (Version None)
Quarter: 2010Q3

REPORT INFORMATION
  Report Type: 
  Country: None (occurrence: None)
  Receive Date: 20100915
  Receipt Date: 20090813
  Transmission Date: 20110219
  Serious: No
  Sender: FDA-Public Use
  Company Number: US-WYE-H10581809

PATIENT
  Sex: Female
  Weight: 63.56 kg

DRUGS (2)
  1. PRISTIQ [Suspect]
     Indication: DEPRESSION
     Route: 048
     Dates: start: 20090811
  2. XANAX [Concomitant]
     Indication: ANXIETY
     Dosage: DOSE UNKNOWN
     Route: 065

REACTIONS (1)
  - NAUSEA [None]
